FAERS Safety Report 12136050 (Version 2)
Quarter: 2016Q1

REPORT INFORMATION
  Report Type: Spontaneous
  Country: DE (occurrence: DE)
  Receive Date: 20160302
  Receipt Date: 20160316
  Transmission Date: 20160526
  Serious: Yes (Other)
  Sender: FDA-Public Use
  Company Number: DE-AUROBINDO-AUR-APL-2016-01677

PATIENT
  Sex: Female

DRUGS (1)
  1. RAMIPRIL-ISIS 5 MG TABLETS [Suspect]
     Active Substance: RAMIPRIL
     Indication: HYPERTENSION
     Route: 048

REACTIONS (7)
  - Dyspnoea [Recovered/Resolved]
  - Fall [Recovered/Resolved]
  - Angina pectoris [Recovered/Resolved]
  - Medication error [Unknown]
  - Drug ineffective [Unknown]
  - Anxiety [Recovered/Resolved]
  - Product substitution issue [Unknown]
